FAERS Safety Report 8854369 (Version 1)
Quarter: 2012Q4

REPORT INFORMATION
  Report Type: 
  Country: JP (occurrence: JP)
  Receive Date: 20121023
  Receipt Date: 20121023
  Transmission Date: 20130627
  Serious: Yes (Other)
  Sender: FDA-Public Use
  Company Number: JP-OTSUKA-JP-2012-14697

PATIENT
  Age: 81 Year
  Sex: Female
  Weight: 43 kg

DRUGS (14)
  1. SAMSCA [Suspect]
     Indication: CARDIAC FAILURE CHRONIC
     Dosage: 15 Mg milligram(s), qam
     Route: 048
     Dates: start: 20110905, end: 20110910
  2. LASIX [Suspect]
     Indication: CARDIAC FAILURE CHRONIC
     Dosage: 100 Mg milligram(s), qd
     Route: 042
     Dates: start: 20110823, end: 20110909
  3. LASIX [Suspect]
     Dosage: 100 Mg milligram(s), qod
     Route: 042
     Dates: start: 20110910, end: 20110914
  4. BAYASPIRIN [Concomitant]
     Indication: ANGINA UNSTABLE
     Dosage: 100 Mg milligram(s), qd
     Route: 048
     Dates: start: 20110822, end: 20110924
  5. TAKEPRON [Concomitant]
     Indication: ANGINA UNSTABLE
     Dosage: 15 Mg milligram(s), qd
     Route: 048
     Dates: start: 20110822, end: 20110924
  6. PLAVIX [Concomitant]
     Indication: ANGINA UNSTABLE
     Dosage: 75 Mg milligram(s), qd
     Route: 048
     Dates: start: 20110822, end: 20110924
  7. LIPITOR [Concomitant]
     Indication: HYPERCHOLESTEROLAEMIA
     Dosage: 10 Mg milligram(s), qd
     Route: 048
     Dates: start: 20110822, end: 20110924
  8. MUCOSOLVAN [Concomitant]
     Indication: UPPER RESPIRATORY TRACT INFLAMMATION
     Dosage: 15 Mg milligram(s), tid
     Route: 048
     Dates: start: 20110825, end: 20110924
  9. SIGMART [Concomitant]
     Indication: ANGINA UNSTABLE
     Dosage: 5 Mg milligram(s), tid
     Route: 048
     Dates: start: 20110831, end: 20110924
  10. HUMULIN R [Concomitant]
     Dosage: 8-14 iu, daily dose
     Route: 058
     Dates: start: 20110901, end: 20110910
  11. PANTOSIN [Concomitant]
     Indication: CONSTIPATION
     Dosage: 60 Mg milligram(s), tid
     Route: 048
     Dates: start: 20110902, end: 20110924
  12. KALIAID [Concomitant]
     Indication: HYPERKALAEMIA
     Dosage: 5 G gram(s), tid
     Route: 048
     Dates: start: 20110904, end: 20110911
  13. SOLDACTONE [Concomitant]
     Dosage: 20 Mg milligram(s), daily dose
     Route: 048
  14. SOLDACTONE [Concomitant]
     Dosage: 20 Mg milligram(s), qod
     Route: 048
     Dates: start: 20110910

REACTIONS (1)
  - Hypernatraemia [Recovered/Resolved]
